FAERS Safety Report 25332300 (Version 1)
Quarter: 2025Q2

REPORT INFORMATION
  Report Type: Spontaneous
  Country: US (occurrence: None)
  Receive Date: 20250519
  Receipt Date: 20250519
  Transmission Date: 20250717
  Serious: No
  Sender: FDA-CTU
  Company Number: None

PATIENT

DRUGS (1)
  1. TRAMADOL [Suspect]
     Active Substance: TRAMADOL

REACTIONS (3)
  - Therapeutic product effect incomplete [None]
  - Pain [None]
  - Alcoholism [None]

NARRATIVE: CASE EVENT DATE: 20250519
